FAERS Safety Report 18267530 (Version 2)
Quarter: 2021Q3

REPORT INFORMATION
  Report Type: Spontaneous
  Country: US (occurrence: US)
  Receive Date: 20200915
  Receipt Date: 20210909
  Transmission Date: 20211014
  Serious: Yes (Hospitalization, Disabling, Other)
  Sender: FDA-Public Use
  Company Number: US-SA-2020SA247799

PATIENT
  Age: 63 Year
  Sex: Female

DRUGS (2)
  1. RANITIDINE. [Suspect]
     Active Substance: RANITIDINE
     Indication: GASTROOESOPHAGEAL REFLUX DISEASE
     Dosage: 150 MG, ANY PERIOD(S) OF NON?USE
     Route: 048
     Dates: start: 201601, end: 201906
  2. ZANTAC [Suspect]
     Active Substance: RANITIDINE HYDROCHLORIDE
     Indication: GASTROOESOPHAGEAL REFLUX DISEASE
     Dosage: 150 MG, ANY PERIOD(S) OF NON?USE
     Route: 048
     Dates: start: 201601, end: 201906

REACTIONS (9)
  - Injury [Unknown]
  - Somatic symptom disorder [Unknown]
  - Physical disability [Unknown]
  - Breast cancer female [Unknown]
  - Pain [Unknown]
  - Anhedonia [Unknown]
  - Neoplasm malignant [Unknown]
  - Anxiety [Unknown]
  - Emotional distress [Unknown]

NARRATIVE: CASE EVENT DATE: 20191206
